FAERS Safety Report 5733303-9 (Version None)
Quarter: 2008Q2

REPORT INFORMATION
  Report Type: 
  Country: None (occurrence: None)
  Receive Date: 20080509
  Receipt Date: 20080428
  Transmission Date: 20081010
  Serious: Yes (Life-Threatening)
  Sender: FDA-Public Use
  Company Number: ES-ROCHE-561346

PATIENT
  Age: 78 Year
  Sex: Female

DRUGS (5)
  1. BONIVA [Suspect]
     Indication: OSTEOPOROSIS
     Route: 048
     Dates: start: 20071212
  2. TEPAZEPAN [Concomitant]
     Route: 048
     Dates: start: 19980101
  3. TEPAZEPAN [Concomitant]
     Route: 048
     Dates: start: 19980101
  4. TEPAZEPAN [Concomitant]
     Route: 048
     Dates: start: 19980101
  5. OMEPRAZOLE [Concomitant]
     Dosage: DRUG NAME: OMPRANYL.
     Route: 048
     Dates: start: 20060101

REACTIONS (2)
  - FATIGUE [None]
  - PULSE ABSENT [None]
